FAERS Safety Report 23323569 (Version 1)
Quarter: 2023Q4

REPORT INFORMATION
  Report Type: Spontaneous
  Country: US (occurrence: None)
  Receive Date: 20231220
  Receipt Date: 20231220
  Transmission Date: 20240110
  Serious: No
  Sender: FDA-Public Use
  Company Number: US-ROCHE-3402662

PATIENT
  Age: 69 Year
  Sex: Male
  Weight: 82.628 kg

DRUGS (4)
  1. RITUXAN [Suspect]
     Active Substance: RITUXIMAB
     Indication: Autoimmune hepatitis
     Dosage: HAD 2ND LOADING DOSE /FEB/2023, INFUSION OVER 4 TO 5 HOURS
     Route: 042
     Dates: start: 202301
  2. CELLCEPT [Suspect]
     Active Substance: MYCOPHENOLATE MOFETIL
     Indication: Autoimmune hepatitis
     Dosage: STARTED IN SUMMER 2022 AND ONLY TOOK IT FOR A FEW DAYS AND STOPPED
     Route: 048
     Dates: start: 2022, end: 2022
  3. PREDNISONE [Concomitant]
     Active Substance: PREDNISONE
     Indication: Autoimmune hepatitis
     Dosage: STARTED ABOUT 16 MONTHS AGO BEFORE CELLCEPT AND RITUXAN. ON A WEANING SCHEDULE.
     Route: 048
  4. SKYRIZI [Concomitant]
     Active Substance: RISANKIZUMAB-RZAA
     Indication: Psoriatic arthropathy
     Dosage: STARTED 1.5 TO 2 MONTHS AGO. HAD 2 LOADING DOSES.
     Route: 058

REACTIONS (16)
  - Malaise [Not Recovered/Not Resolved]
  - Fatigue [Not Recovered/Not Resolved]
  - Dizziness [Not Recovered/Not Resolved]
  - Decreased appetite [Not Recovered/Not Resolved]
  - Abdominal discomfort [Not Recovered/Not Resolved]
  - Weight decreased [Not Recovered/Not Resolved]
  - Depression [Not Recovered/Not Resolved]
  - Anxiety [Not Recovered/Not Resolved]
  - Influenza like illness [Not Recovered/Not Resolved]
  - Mental status changes [Recovered/Resolved]
  - Loss of personal independence in daily activities [Recovered/Resolved]
  - Depressed level of consciousness [Recovered/Resolved]
  - Staring [Recovered/Resolved]
  - Memory impairment [Recovered/Resolved]
  - Weight increased [Unknown]
  - Off label use [Unknown]

NARRATIVE: CASE EVENT DATE: 20220101
